FAERS Safety Report 7494952-3 (Version None)
Quarter: 2011Q2

REPORT INFORMATION
  Report Type: 
  Country: None (occurrence: None)
  Receive Date: 20110520
  Receipt Date: 20110511
  Transmission Date: 20111010
  Serious: No
  Sender: FDA-Public Use
  Company Number: B0719109A

PATIENT

DRUGS (1)
  1. RELENZA [Suspect]
     Route: 055

REACTIONS (1)
  - WRONG TECHNIQUE IN DRUG USAGE PROCESS [None]
